FAERS Safety Report 5565909-4 (Version None)
Quarter: 2007Q4

REPORT INFORMATION
  Report Type: 
  Country: None (occurrence: None)
  Receive Date: 20071213
  Receipt Date: 20071129
  Transmission Date: 20080405
  Serious: Yes (Other)
  Sender: FDA-Public Use
  Company Number: 141233USA

PATIENT
  Age: 41 Year
  Sex: Female

DRUGS (2)
  1. COPAXONE [Suspect]
     Indication: MULTIPLE SCLEROSIS
     Dosage: (20 MG, ONCE A DAY) SUBCUTANEOUS
     Route: 058
     Dates: start: 20040604
  2. SYNTHROID [Concomitant]

REACTIONS (5)
  - INJECTION SITE NECROSIS [None]
  - INJECTION SITE PAIN [None]
  - INJECTION SITE SCAB [None]
  - INJECTION SITE SCAR [None]
  - WRONG TECHNIQUE IN DRUG USAGE PROCESS [None]
